FAERS Safety Report 5362269-9 (Version None)
Quarter: 2007Q2

REPORT INFORMATION
  Report Type: 
  Country: None (occurrence: None)
  Receive Date: 20070619
  Receipt Date: 20070611
  Transmission Date: 20071010
  Serious: Yes (Hospitalization)
  Sender: FDA-Public Use
  Company Number: US-ELI_LILLY_AND_COMPANY-US200704000488

PATIENT
  Age: 66 Year
  Sex: Female
  Weight: 92.97 kg

DRUGS (14)
  1. LANTUS [Concomitant]
     Dosage: UNK, UNKNOWN
  2. LIPITOR [Concomitant]
     Dosage: UNK, UNKNOWN
  3. GLIPIZIDE [Concomitant]
     Dosage: UNK, UNKNOWN
  4. ALTACE [Concomitant]
     Dosage: UNK, UNKNOWN
  5. ZETIA [Concomitant]
     Dosage: UNK, UNKNOWN
  6. NORVASC [Concomitant]
     Dosage: UNK, UNKNOWN
  7. TOPROL-XL [Concomitant]
     Dosage: UNK, UNKNOWN
  8. ACTONEL [Concomitant]
     Dosage: UNK, UNKNOWN
  9. ATIVAN [Concomitant]
     Dosage: UNK, UNKNOWN
  10. HALOPERIDOL [Concomitant]
     Dosage: UNK, UNKNOWN
  11. BYETTA [Suspect]
     Indication: DIABETES MELLITUS NON-INSULIN-DEPENDENT
     Dosage: 5 UG, 2/D
     Route: 058
     Dates: start: 20070221, end: 20070319
  12. ASPIRIN [Concomitant]
     Indication: ANTICOAGULANT THERAPY
     Dosage: 81 MG, UNK
     Route: 048
  13. CLOPIDOGREL [Concomitant]
     Indication: ANTICOAGULANT THERAPY
     Dosage: 75 MG, DAILY (1/D)
     Route: 048
  14. DIOVAN HCT [Concomitant]
     Indication: DIURETIC THERAPY
     Dates: start: 20070201

REACTIONS (4)
  - ANAEMIA [None]
  - GASTROINTESTINAL ULCER HAEMORRHAGE [None]
  - NASAL CONGESTION [None]
  - PAIN IN EXTREMITY [None]
